FAERS Safety Report 6973610-5 (Version None)
Quarter: 2010Q3

REPORT INFORMATION
  Report Type: 
  Country: None (occurrence: None)
  Receive Date: 20100909
  Receipt Date: 20100830
  Transmission Date: 20110219
  Serious: Yes (Hospitalization)
  Sender: FDA-Public Use
  Company Number: US-BAXTER-2010BH021277

PATIENT
  Sex: Female

DRUGS (1)
  1. DIANEAL [Suspect]
     Indication: PERITONEAL DIALYSIS
     Route: 033
     Dates: end: 20100811

REACTIONS (5)
  - GASTROINTESTINAL DISORDER [None]
  - HERNIA [None]
  - PAIN [None]
  - PERITONITIS BACTERIAL [None]
  - STAPHYLOCOCCAL INFECTION [None]
